FAERS Safety Report 6185714-8 (Version None)
Quarter: 2009Q2

REPORT INFORMATION
  Report Type: 
  Country: None (occurrence: None)
  Receive Date: 20090511
  Receipt Date: 20090507
  Transmission Date: 20091009
  Serious: Yes (Death, Hospitalization)
  Sender: FDA-Public Use
  Company Number: US-GILEAD-2009-0021612

PATIENT
  Sex: Female
  Weight: 82.628 kg

DRUGS (11)
  1. LETAIRIS [Suspect]
     Indication: PULMONARY ARTERIAL HYPERTENSION
     Route: 048
     Dates: start: 20090407
  2. DIGOXIN [Concomitant]
  3. CARDIZEM CD [Concomitant]
  4. TIKOSYN [Concomitant]
  5. BUMEX [Concomitant]
  6. WARFARIN [Concomitant]
  7. ADVAIR HFA [Concomitant]
  8. XOPENEX HFA [Concomitant]
  9. PROTONIX [Concomitant]
  10. SPIRIVA [Concomitant]
  11. KLOR-CON M20 [Concomitant]

REACTIONS (2)
  - DEATH [None]
  - DYSPNOEA [None]
